FAERS Safety Report 9620828 (Version 2)
Quarter: 2013Q4

REPORT INFORMATION
  Report Type: Spontaneous
  Country: GB (occurrence: GB)
  Receive Date: 20131015
  Receipt Date: 20131028
  Transmission Date: 20140711
  Serious: Yes (Hospitalization, Other)
  Sender: FDA-Public Use
  Company Number: GB-CELGENEUS-167-21660-13100515

PATIENT
  Age: 65 Year
  Sex: Female

DRUGS (3)
  1. ABRAXANE [Suspect]
     Indication: BREAST CANCER METASTATIC
     Route: 050
     Dates: start: 20130524
  2. ABRAXANE [Suspect]
     Route: 050
     Dates: start: 20130614
  3. ABRAXANE [Suspect]
     Route: 050

REACTIONS (5)
  - Ear infection [Unknown]
  - Neuralgia [Unknown]
  - Syncope [Unknown]
  - Asthenia [Unknown]
  - Neuropathy peripheral [Unknown]
